FAERS Safety Report 14776480 (Version 1)
Quarter: 2018Q2

REPORT INFORMATION
  Report Type: Spontaneous
  Country: CN (occurrence: CN)
  Receive Date: 20180418
  Receipt Date: 20180418
  Transmission Date: 20180711
  Serious: Yes (Other)
  Sender: FDA-Public Use
  Company Number: CN-B. BRAUN MEDICAL INC.-2045984

PATIENT
  Age: 30 Year
  Sex: Female

DRUGS (1)
  1. NUTRILIPID I.V. FAT EMULSION [Suspect]
     Active Substance: SOYBEAN OIL
     Indication: NUTRITIONAL SUPPLEMENTATION
     Route: 041
     Dates: start: 20180214, end: 20180214

REACTIONS (7)
  - Gingival swelling [Recovered/Resolved]
  - Gingival pain [Recovered/Resolved]
  - Feeling cold [Recovered/Resolved]
  - Cough [Recovered/Resolved]
  - Infusion related reaction [Recovered/Resolved]
  - Chills [Recovered/Resolved]
  - Nausea [Recovered/Resolved]
